FAERS Safety Report 6099225-1 (Version None)
Quarter: 2009Q1

REPORT INFORMATION
  Report Type: 
  Country: None (occurrence: None)
  Receive Date: 20090303
  Receipt Date: 20090218
  Transmission Date: 20090719
  Serious: Yes (Hospitalization)
  Sender: FDA-Public Use
  Company Number: GB-JNJFOC-20090205094

PATIENT
  Age: 12 Day
  Sex: Male

DRUGS (3)
  1. PARACETMOL [Suspect]
     Route: 048
  2. PARACETMOL [Suspect]
     Indication: POISONING DELIBERATE
     Route: 048
  3. LAMOTRIGINE [Suspect]
     Indication: POISONING DELIBERATE

REACTIONS (1)
  - POISONING DELIBERATE [None]
